FAERS Safety Report 16882157 (Version 1)
Quarter: 2019Q4

REPORT INFORMATION
  Report Type: Spontaneous
  Country: US (occurrence: US)
  Receive Date: 20191003
  Receipt Date: 20191003
  Transmission Date: 20200122
  Serious: No
  Sender: FDA-Public Use
  Company Number: US-HORIZON-PEN-0861-2019

PATIENT
  Age: 45 Year
  Sex: Female

DRUGS (1)
  1. PENNSAID [Suspect]
     Active Substance: DICLOFENAC SODIUM
     Indication: PAIN
     Dosage: 1 SAMPLE PACKET ONE A DAY
     Dates: start: 20190917, end: 20190921

REACTIONS (3)
  - Off label use [Recovered/Resolved]
  - Erythema [Recovered/Resolved]
  - Pain of skin [Recovered/Resolved]

NARRATIVE: CASE EVENT DATE: 20190917
